FAERS Safety Report 11368217 (Version 1)
Quarter: 2015Q3

REPORT INFORMATION
  Report Type: Spontaneous
  Country: US (occurrence: US)
  Receive Date: 20150811
  Receipt Date: 20150811
  Transmission Date: 20151125
  Serious: No
  Sender: FDA-Public Use
  Company Number: US-ELI_LILLY_AND_COMPANY-US201312004339

PATIENT
  Age: 63 Year
  Sex: Male
  Weight: 118.82 kg

DRUGS (10)
  1. AXIRON [Suspect]
     Active Substance: TESTOSTERONE
     Dosage: 120 MG, QD
     Route: 061
     Dates: start: 201303
  2. AXIRON [Suspect]
     Active Substance: TESTOSTERONE
     Dosage: 120 MG, UNK
     Route: 061
     Dates: start: 201311
  3. PERCOCET [Concomitant]
     Active Substance: ACETAMINOPHEN\OXYCODONE HYDROCHLORIDE
     Indication: PAIN
     Dosage: UNK, OTHER
     Route: 065
  4. LIPITOR [Concomitant]
     Active Substance: ATORVASTATIN CALCIUM
     Indication: BLOOD CHOLESTEROL INCREASED
     Dosage: UNK, UNKNOWN
     Route: 065
  5. AXIRON [Suspect]
     Active Substance: TESTOSTERONE
     Indication: BLOOD TESTOSTERONE DECREASED
     Dosage: 30 MG, OTHER
     Route: 061
     Dates: start: 20121204
  6. LISINOPRIL. [Concomitant]
     Active Substance: LISINOPRIL
     Indication: HYPERTENSION
     Dosage: UNK, UNKNOWN
     Route: 065
  7. TRAMADOL. [Concomitant]
     Active Substance: TRAMADOL
     Indication: PRODUCT USED FOR UNKNOWN INDICATION
     Dosage: 50 MG, OTHER
     Route: 065
  8. CRESTOR [Concomitant]
     Active Substance: ROSUVASTATIN CALCIUM
     Indication: PRODUCT USED FOR UNKNOWN INDICATION
     Dosage: 10 MG, UNKNOWN
     Route: 065
  9. AXIRON [Suspect]
     Active Substance: TESTOSTERONE
     Dosage: 120 MG, QD
     Route: 061
     Dates: end: 20140207
  10. TRAZODONE [Concomitant]
     Active Substance: TRAZODONE HYDROCHLORIDE
     Indication: PRODUCT USED FOR UNKNOWN INDICATION
     Dosage: 4 MG, OTHER
     Route: 065

REACTIONS (10)
  - Sleep disorder [Unknown]
  - Joint swelling [Recovered/Resolved]
  - Asthenia [Unknown]
  - Oedema peripheral [Recovered/Resolved]
  - Gynaecomastia [Unknown]
  - Weight decreased [Unknown]
  - Weight increased [Unknown]
  - Back pain [Unknown]
  - Sciatica [Unknown]
  - Headache [Unknown]

NARRATIVE: CASE EVENT DATE: 201303
